FAERS Safety Report 5104962-9 (Version None)
Quarter: 2006Q3

REPORT INFORMATION
  Report Type: 
  Country: None (occurrence: None)
  Receive Date: 20060911
  Receipt Date: 20060828
  Transmission Date: 20061208
  Serious: Yes (Hospitalization, Other)
  Sender: FDA-Public Use
  Company Number: 2005BI021573

PATIENT
  Age: 26 Year
  Sex: Female

DRUGS (2)
  1. AVONEX [Suspect]
     Indication: MULTIPLE SCLEROSIS
     Dosage: 30 UG; QW; IM
     Route: 030
     Dates: start: 20040819, end: 20050927
  2. SEIZURE MEDICATION [Concomitant]

REACTIONS (4)
  - APHASIA [None]
  - ASTHENIA [None]
  - CONVULSION [None]
  - HEMIPLEGIA [None]
